FAERS Safety Report 13757565 (Version 3)
Quarter: 2018Q1

REPORT INFORMATION
  Report Type: Report from Study
  Country: None (occurrence: BR)
  Receive Date: 20170717
  Receipt Date: 20180319
  Transmission Date: 20180508
  Serious: Yes (Disabling, Other)
  Sender: FDA-Public Use
  Company Number: BR-ABBVIE-17K-020-2035269-00

PATIENT
  Age: 72 Year
  Sex: Male
  Weight: 68 kg

DRUGS (10)
  1. BENERVA [Concomitant]
     Active Substance: THIAMINE
     Indication: OPTIC NERVE DISORDER
     Route: 048
     Dates: start: 20160201
  2. HUMIRA [Suspect]
     Active Substance: ADALIMUMAB
     Route: 058
     Dates: start: 20170518, end: 20170602
  3. CORUS [Concomitant]
     Active Substance: LOSARTAN POTASSIUM
     Indication: HYPERTENSION
     Dosage: A HALF TABLET DAILY
     Route: 048
     Dates: start: 2016
  4. HUMIRA [Suspect]
     Active Substance: ADALIMUMAB
     Route: 058
     Dates: start: 2017
  5. SYSTANE (HYPROMELLOSE 2910 (4000 MPA.S)) [Concomitant]
     Active Substance: HYPROMELLOSE 2910 (4000 MPA.S)
     Indication: EYE DISORDER
  6. SOMALGIN CARDIO [Concomitant]
     Active Substance: ASPIRIN\DIHYDROXYALUMINUM AMINOACETATE ANHYDROUS\MAGNESIUM CARBONATE
     Indication: PRODUCT USED FOR UNKNOWN INDICATION
     Route: 048
     Dates: start: 201007
  7. CORUS [Concomitant]
     Active Substance: LOSARTAN POTASSIUM
     Indication: HYPERTENSION
  8. HUMIRA [Suspect]
     Active Substance: ADALIMUMAB
     Indication: ANKYLOSING SPONDYLITIS
     Route: 058
     Dates: start: 20150919, end: 20170323
  9. PREDNISONE. [Concomitant]
     Active Substance: PREDNISONE
     Indication: ANKYLOSING SPONDYLITIS
     Dosage: A HALF TABLET EVERY 12 HOURS AND 2,5MG EVERY OTHER DAY. 1/4 TABLET EVERY OTHER DAY
     Route: 048
  10. AVASTIN [Concomitant]
     Active Substance: BEVACIZUMAB
     Indication: HAEMORRHAGE
     Dosage: UNIT DOSE: 1 INJECTION
     Route: 050
     Dates: start: 201504, end: 201504

REACTIONS (9)
  - Visual impairment [Not Recovered/Not Resolved]
  - Papilloedema [Not Recovered/Not Resolved]
  - Procedural complication [Not Recovered/Not Resolved]
  - Procedural complication [Unknown]
  - Loss of personal independence in daily activities [Unknown]
  - Diplopia [Not Recovered/Not Resolved]
  - Blindness unilateral [Unknown]
  - Eye haemorrhage [Not Recovered/Not Resolved]
  - Cataract [Not Recovered/Not Resolved]

NARRATIVE: CASE EVENT DATE: 20160620
